FAERS Safety Report 4824269-4 (Version None)
Quarter: 2005Q4

REPORT INFORMATION
  Report Type: 
  Country: None (occurrence: None)
  Receive Date: 20051108
  Receipt Date: 20051027
  Transmission Date: 20060501
  Serious: Yes (Other)
  Sender: FDA-Public Use
  Company Number: 2005147740

PATIENT
  Age: 85 Year
  Sex: Female
  Weight: 54.4316 kg

DRUGS (3)
  1. DETROL [Suspect]
     Indication: URINARY INCONTINENCE
     Dosage: (2 MG, AS NECESSARY),
  2. CELEBREX [Concomitant]
  3. LASIX [Concomitant]

REACTIONS (2)
  - ATRIAL FIBRILLATION [None]
  - MACULAR DEGENERATION [None]
